FAERS Safety Report 14769916 (Version 4)
Quarter: 2018Q2

REPORT INFORMATION
  Report Type: Report from Study
  Country: AR (occurrence: AR)
  Receive Date: 20180417
  Receipt Date: 20180626
  Transmission Date: 20180711
  Serious: Yes (Other)
  Sender: FDA-Public Use
  Company Number: PHHY2018AR065449

PATIENT
  Sex: Female

DRUGS (1)
  1. SANDOSTATIN LAR DEPOT [Suspect]
     Active Substance: OCTREOTIDE ACETATE
     Indication: ACROMEGALY
     Dosage: 20 MG, QMO (EVERY 28 DAYS)
     Route: 065
     Dates: start: 20160422

REACTIONS (17)
  - Limb discomfort [Recovering/Resolving]
  - General physical health deterioration [Recovering/Resolving]
  - Diabetes mellitus [Unknown]
  - Intraocular pressure test abnormal [Not Recovered/Not Resolved]
  - Joint injury [Recovering/Resolving]
  - Laboratory test abnormal [Recovering/Resolving]
  - Wrist deformity [Recovering/Resolving]
  - Blindness [Not Recovered/Not Resolved]
  - Headache [Recovering/Resolving]
  - Visual acuity reduced [Not Recovered/Not Resolved]
  - Gait disturbance [Recovering/Resolving]
  - Malaise [Recovering/Resolving]
  - Ear pain [Recovering/Resolving]
  - Fall [Recovering/Resolving]
  - Visual impairment [Not Recovered/Not Resolved]
  - Neoplasm progression [Unknown]
  - Depressed mood [Recovering/Resolving]
